FAERS Safety Report 4512169-9 (Version None)
Quarter: 2004Q4

REPORT INFORMATION
  Report Type: 
  Country: None (occurrence: None)
  Receive Date: 20041129
  Receipt Date: 20041122
  Transmission Date: 20050328
  Serious: Yes (Hospitalization)
  Sender: FDA-Public Use
  Company Number: DE-ROCHE-386745

PATIENT
  Age: 62 Year
  Sex: Female
  Weight: 52 kg

DRUGS (11)
  1. CAPECITABINE [Suspect]
     Dosage: 2500 MG/M^2 ON DAYS 1 AND 14 OF CYCLE.
     Route: 048
     Dates: start: 20041011, end: 20041114
  2. TRASTUZUMAB [Suspect]
     Dosage: LOADING DOSE.
     Route: 042
     Dates: start: 20041011, end: 20041011
  3. TRASTUZUMAB [Suspect]
     Route: 042
     Dates: start: 20041018, end: 20041115
  4. THEOPHYLLINE [Concomitant]
     Route: 048
     Dates: start: 20020615
  5. DEXAMETHASONE [Concomitant]
     Route: 048
     Dates: start: 20041015
  6. PANTOZOL [Concomitant]
     Route: 048
     Dates: start: 20041015
  7. ZOFRAN [Concomitant]
     Dates: start: 20041015
  8. AMITRIPTYLIN [Concomitant]
     Route: 048
     Dates: start: 20041015
  9. SPIRIVA [Concomitant]
     Route: 055
     Dates: start: 20040615
  10. MORPHINE [Concomitant]
     Dates: start: 20041008
  11. NOVAMIN (AMIKACIN SULFATE) [Concomitant]
     Dates: start: 20041011

REACTIONS (2)
  - DEHYDRATION [None]
  - MUCOSAL INFLAMMATION [None]
